FAERS Safety Report 7197214-7 (Version None)
Quarter: 2010Q4

REPORT INFORMATION
  Report Type: 
  Country: None (occurrence: None)
  Receive Date: 20101224
  Receipt Date: 20101213
  Transmission Date: 20110411
  Serious: Yes (Other)
  Sender: FDA-Public Use
  Company Number: PHHY2010JP86599

PATIENT
  Sex: Female

DRUGS (2)
  1. SANDOSTATIN [Suspect]
     Indication: ACROMEGALY
     Dosage: UNK
     Route: 058
     Dates: start: 20101108, end: 20101118
  2. SANDOSTATIN LAR [Suspect]
     Indication: ACROMEGALY
     Dosage: UNK
     Route: 030
     Dates: start: 20101119, end: 20101213

REACTIONS (3)
  - CONCOMITANT DISEASE AGGRAVATED [None]
  - HYPOAESTHESIA [None]
  - SPINAL COLUMN STENOSIS [None]
